FAERS Safety Report 24053847 (Version 3)
Quarter: 2024Q3

REPORT INFORMATION
  Report Type: Spontaneous
  Country: GB (occurrence: GB)
  Receive Date: 20240705
  Receipt Date: 20240927
  Transmission Date: 20241016
  Serious: No
  Sender: BECTON DICKINSON
  Company Number: GB-BECTON DICKINSON-GB-BD-24-000396

PATIENT
  Age: 52 Year

DRUGS (1)
  1. CHLORAPREP [Suspect]
     Active Substance: CHLORHEXIDINE GLUCONATE\ISOPROPYL ALCOHOL
     Indication: Infection prophylaxis
     Dosage: UNK
     Route: 061
     Dates: start: 20240610, end: 20240610

REACTIONS (3)
  - Scratch [Recovered/Resolved]
  - Injury associated with device [Recovered/Resolved]
  - Device malfunction [Unknown]

NARRATIVE: CASE EVENT DATE: 20240610
